FAERS Safety Report 9631789 (Version 1)
Quarter: 2013Q4

REPORT INFORMATION
  Report Type: Spontaneous
  Country: US (occurrence: US)
  Receive Date: 20131018
  Receipt Date: 20131018
  Transmission Date: 20140711
  Serious: No
  Sender: FDA-Public Use
  Company Number: US-MYLANLABS-2013S1016595

PATIENT
  Age: 12 Year
  Sex: Female

DRUGS (1)
  1. LEVONORGESTREL AND ETHINYL ESTRADIOL TABLETS USP [Suspect]
     Indication: MENSTRUAL DISORDER
     Dosage: TAKING 2 TABLETS DAILY. (STRENGTH PER TABLET 0.15 MG/0.03 MG)
     Route: 048
     Dates: start: 201305, end: 201307

REACTIONS (2)
  - Mood altered [Not Recovered/Not Resolved]
  - Crying [Not Recovered/Not Resolved]
